FAERS Safety Report 24320532 (Version 4)
Quarter: 2025Q3

REPORT INFORMATION
  Report Type: Spontaneous
  Country: US (occurrence: US)
  Receive Date: 20240915
  Receipt Date: 20250729
  Transmission Date: 20251021
  Serious: No
  Sender: SANOFI AVENTIS
  Company Number: US-SA-2024SA262389

PATIENT
  Sex: Male

DRUGS (14)
  1. DUPIXENT [Suspect]
     Active Substance: DUPILUMAB
     Indication: Dermatitis atopic
     Dosage: 300 MG, QOW
     Route: 058
     Dates: start: 20210127
  2. DUPIXENT [Suspect]
     Active Substance: DUPILUMAB
     Indication: Alopecia areata
  3. ALBUTEROL SULFATE [Concomitant]
     Active Substance: ALBUTEROL SULFATE
  4. ALBUTEROL SULFATE [Concomitant]
     Active Substance: ALBUTEROL SULFATE
  5. ANASTROZOLE [Concomitant]
     Active Substance: ANASTROZOLE
  6. BREO ELLIPTA [Concomitant]
     Active Substance: FLUTICASONE FUROATE\VILANTEROL TRIFENATATE
  7. EPINEPHRINE [Concomitant]
     Active Substance: EPINEPHRINE
  8. EUCRISA [Concomitant]
     Active Substance: CRISABOROLE
  9. MONTELUKAST [Concomitant]
     Active Substance: MONTELUKAST
  10. TRIAMCINOLONE [Concomitant]
     Active Substance: TRIAMCINOLONE
  11. VENTOLIN [Concomitant]
     Active Substance: ALBUTEROL SULFATE
  12. OLUMIANT [Concomitant]
     Active Substance: BARICITINIB
  13. OLUMIANT [Concomitant]
     Active Substance: BARICITINIB
  14. LITFULO [Concomitant]
     Active Substance: RITLECITINIB TOSYLATE

REACTIONS (3)
  - Impaired quality of life [Unknown]
  - Drug ineffective [Unknown]
  - Product use in unapproved indication [Unknown]
